FAERS Safety Report 9259080 (Version 2)
Quarter: 2013Q3

REPORT INFORMATION
  Report Type: Spontaneous
  Country: FR (occurrence: FR)
  Receive Date: 20130426
  Receipt Date: 20130819
  Transmission Date: 20140515
  Serious: Yes (Hospitalization, Other)
  Sender: FDA-Public Use
  Company Number: FR-BRISTOL-MYERS SQUIBB COMPANY-18802470

PATIENT
  Age: 43 Year
  Sex: Male

DRUGS (11)
  1. REYATAZ CAPS 150 MG [Suspect]
     Indication: HIV INFECTION
     Route: 048
  2. NORVIR [Interacting]
     Indication: HIV INFECTION
     Route: 048
  3. LAMICTAL [Interacting]
     Indication: EPILEPSY
     Dosage: 50MG-1 DF IN MORNING,1 IN EVENING
     Route: 048
  4. CLOPIXOL [Interacting]
     Indication: PSYCHOTIC DISORDER
     Route: 048
  5. TRUVADA [Concomitant]
     Dosage: 1 AT MIDDAY,
  6. VALIUM [Concomitant]
     Dosage: 1 IN THE MORNING, 1 AT MIDDAY, AND 1 IN THE EVENING,
  7. HEPT-A-MYL [Concomitant]
     Dosage: 2 IN THE MORNING, 1 AT MIDDAY AND 1 IN THE EVENING,
  8. BACTRIM [Concomitant]
  9. SPECIAFOLDINE [Concomitant]
  10. TRANSIPEG [Concomitant]
     Dosage: 1 IN THE MORNING
  11. LANSOYL [Concomitant]

REACTIONS (5)
  - Hypothermia [Recovered/Resolved]
  - Status epilepticus [Recovered/Resolved]
  - Coma [Recovered/Resolved]
  - Drug interaction [Unknown]
  - Drug dose omission [Unknown]
